FAERS Safety Report 10705078 (Version 1)
Quarter: 2015Q1

REPORT INFORMATION
  Report Type: Spontaneous
  Country: IN (occurrence: IN)
  Receive Date: 20150112
  Receipt Date: 20150112
  Transmission Date: 20150721
  Serious: Yes (Other)
  Sender: FDA-Public Use
  Company Number: PHHY2015IN001563

PATIENT
  Age: 37 Year
  Sex: Male

DRUGS (2)
  1. IMATINIB [Suspect]
     Active Substance: IMATINIB
     Indication: CHRONIC MYELOID LEUKAEMIA
     Dosage: 400 MG, UNK
     Route: 065
  2. IMATINIB [Suspect]
     Active Substance: IMATINIB
     Dosage: 800 MG, UNK
     Route: 065

REACTIONS (8)
  - Blast crisis in myelogenous leukaemia [Unknown]
  - Splenomegaly [Unknown]
  - Abdominal distension [Unknown]
  - Hepatomegaly [Unknown]
  - Weight decreased [Unknown]
  - Filariasis [Recovered/Resolved]
  - Pyrexia [Unknown]
  - Monocytosis [Unknown]
